FAERS Safety Report 7941710-9 (Version None)
Quarter: 2011Q4

REPORT INFORMATION
  Report Type: 
  Country: None (occurrence: None)
  Receive Date: 20111128
  Receipt Date: 20111128
  Transmission Date: 20120403
  Serious: No
  Sender: FDA-Public Use
  Company Number: None

PATIENT
  Age: 55 Year
  Sex: Female
  Weight: 48.987 kg

DRUGS (1)
  1. GILENYA [Suspect]
     Indication: RELAPSING-REMITTING MULTIPLE SCLEROSIS
     Dosage: 1 TABLET
     Route: 048
     Dates: start: 20110512, end: 20110519

REACTIONS (14)
  - INFLUENZA [None]
  - CHROMATURIA [None]
  - MYALGIA [None]
  - HEADACHE [None]
  - DISTURBANCE IN ATTENTION [None]
  - BACK PAIN [None]
  - COUGH [None]
  - ABDOMINAL PAIN UPPER [None]
  - IMPAIRED WORK ABILITY [None]
  - DECREASED APPETITE [None]
  - FATIGUE [None]
  - THYROXINE ABNORMAL [None]
  - NAUSEA [None]
  - DIARRHOEA [None]
